FAERS Safety Report 8010962-1 (Version None)
Quarter: 2011Q4

REPORT INFORMATION
  Report Type: 
  Country: None (occurrence: None)
  Receive Date: 20111228
  Receipt Date: 20111222
  Transmission Date: 20120403
  Serious: Yes (Other)
  Sender: FDA-Public Use
  Company Number: BR-PFIZER INC-2011311488

PATIENT
  Age: 27 Year
  Sex: Female
  Weight: 70 kg

DRUGS (1)
  1. NORDETTE-21 [Suspect]
     Dosage: [0.15 MG LEVONORGESTREL/ 0.03 MG ETHINYL ESTRADIOL] FOR 21 DAYS AND PAUSE
     Route: 048

REACTIONS (1)
  - HAEMORRHAGE [None]
